FAERS Safety Report 7589534-9 (Version None)
Quarter: 2011Q3

REPORT INFORMATION
  Report Type: 
  Country: None (occurrence: None)
  Receive Date: 20110705
  Receipt Date: 20110702
  Transmission Date: 20111222
  Serious: Yes (Other)
  Sender: FDA-Public Use
  Company Number: US-PFIZER INC-2011148068

PATIENT
  Sex: Female

DRUGS (3)
  1. MUCINEX [Concomitant]
     Indication: SINUS DISORDER
     Dosage: 1 PILL DAILY
  2. SYNTHROID [Concomitant]
     Indication: THYROID DISORDER
     Dosage: 50MG AND 2MG DAILY
     Dates: start: 19910101
  3. ADVIL LIQUI-GELS [Suspect]
     Indication: ARTHRALGIA
     Dosage: UNK
     Route: 048
     Dates: start: 20110701

REACTIONS (1)
  - HYPERTENSION [None]
